FAERS Safety Report 19019477 (Version 3)
Quarter: 2021Q1

REPORT INFORMATION
  Report Type: Spontaneous
  Country: CN (occurrence: CN)
  Receive Date: 20210317
  Receipt Date: 20210329
  Transmission Date: 20210420
  Serious: Yes (Other)
  Sender: FDA-Public Use
  Company Number: CN-GLAXOSMITHKLINE-CN2021APC059088

PATIENT

DRUGS (3)
  1. AMINOPHYLLINE. [Suspect]
     Active Substance: AMINOPHYLLINE
     Indication: COUGH VARIANT ASTHMA
     Dosage: UNK
     Dates: start: 20210113
  2. SINGULAIR [Suspect]
     Active Substance: MONTELUKAST SODIUM
     Indication: COUGH VARIANT ASTHMA
     Dosage: UNK
     Route: 048
     Dates: start: 202006
  3. ANORO [Suspect]
     Active Substance: UMECLIDINIUM BROMIDE\VILANTEROL TRIFENATATE
     Indication: COUGH VARIANT ASTHMA
     Dosage: 1 DF, QD (INHALATION)
     Route: 055
     Dates: start: 20210113, end: 20210303

REACTIONS (6)
  - Muscle hypertrophy [Not Recovered/Not Resolved]
  - Heart rate increased [Unknown]
  - Off label use [Recovered/Resolved]
  - Blood corticotrophin increased [Recovering/Resolving]
  - Weight increased [Not Recovered/Not Resolved]
  - Palpitations [Unknown]

NARRATIVE: CASE EVENT DATE: 20210113
